FAERS Safety Report 13353232 (Version 1)
Quarter: 2017Q1

REPORT INFORMATION
  Report Type: Spontaneous
  Country: RU (occurrence: RU)
  Receive Date: 20170321
  Receipt Date: 20170321
  Transmission Date: 20170429
  Serious: Yes (Hospitalization)
  Sender: FDA-Public Use
  Company Number: RU-ASTRAZENECA-2017SE28362

PATIENT
  Age: 68 Year
  Sex: Male
  Weight: 95 kg

DRUGS (6)
  1. VEROSPIRON [Concomitant]
     Active Substance: SPIRONOLACTONE
  2. ATORIS [Concomitant]
     Active Substance: ATORVASTATIN CALCIUM
  3. CORDARONE [Concomitant]
     Active Substance: AMIODARONE HYDROCHLORIDE
  4. GLIFORMIN [Concomitant]
  5. ASPIRIN CARDIO [Concomitant]
     Active Substance: ASPIRIN
  6. BRILINTA [Suspect]
     Active Substance: TICAGRELOR
     Indication: MYOCARDIAL INFARCTION
     Route: 048
     Dates: start: 20161204

REACTIONS (3)
  - Decubitus ulcer [Unknown]
  - Pyrexia [Recovered/Resolved]
  - Weight decreased [Unknown]
